FAERS Safety Report 8106723-5 (Version None)
Quarter: 2012Q1

REPORT INFORMATION
  Report Type: 
  Country: None (occurrence: None)
  Receive Date: 20120130
  Receipt Date: 20120123
  Transmission Date: 20120608
  Serious: Yes (Hospitalization, Other)
  Sender: FDA-Public Use
  Company Number: 2010SP056520

PATIENT
  Age: 24 Year
  Sex: Female
  Weight: 114.3065 kg

DRUGS (1)
  1. NUVARING [Suspect]
     Indication: CONTRACEPTION
     Dosage: QM
     Dates: start: 20051219, end: 20080122

REACTIONS (37)
  - PRESYNCOPE [None]
  - SUPERIOR SAGITTAL SINUS THROMBOSIS [None]
  - PAIN [None]
  - HYPERGLYCAEMIA [None]
  - BENIGN INTRACRANIAL HYPERTENSION [None]
  - PALPITATIONS [None]
  - DIZZINESS [None]
  - BLOOD PRESSURE INCREASED [None]
  - HEADACHE [None]
  - TOOTH EXTRACTION [None]
  - VOMITING [None]
  - HYPOAESTHESIA [None]
  - GRAND MAL CONVULSION [None]
  - COMPLICATED MIGRAINE [None]
  - ANXIETY [None]
  - SYNCOPE [None]
  - DYSKINESIA [None]
  - DRUG SCREEN POSITIVE [None]
  - DYSPNOEA EXERTIONAL [None]
  - TREMOR [None]
  - PAPILLOEDEMA [None]
  - NASAL CONGESTION [None]
  - EPISTAXIS [None]
  - LOSS OF CONSCIOUSNESS [None]
  - SINUS TACHYCARDIA [None]
  - PANIC ATTACK [None]
  - HYPERCOAGULATION [None]
  - CEREBRAL INFARCTION [None]
  - PLATELET COUNT INCREASED [None]
  - SCOTOMA [None]
  - UPPER-AIRWAY COUGH SYNDROME [None]
  - FALL [None]
  - EPILEPSY [None]
  - PNEUMONIA [None]
  - NAUSEA [None]
  - MOANING [None]
  - MENTAL DISORDER [None]
